FAERS Safety Report 7382538-0 (Version None)
Quarter: 2011Q1

REPORT INFORMATION
  Report Type: 
  Country: None (occurrence: None)
  Receive Date: 20110329
  Receipt Date: 20110322
  Transmission Date: 20110831
  Serious: Yes (Death, Life-Threatening)
  Sender: FDA-Public Use
  Company Number: NO-BRISTOL-MYERS SQUIBB COMPANY-15606775

PATIENT
  Age: 81 Year
  Sex: Female

DRUGS (3)
  1. BURINEX [Suspect]
     Indication: CARDIAC FAILURE
     Dosage: 1DF=4MG PLUS 2MG
     Route: 048
  2. GLUCOPHAGE [Suspect]
     Indication: TYPE 2 DIABETES MELLITUS
     Route: 048
  3. VALSARTAN  AND HYDROCHLOROTHIAZIDE [Suspect]
     Indication: CARDIAC FAILURE
     Dosage: 1DF=160MG/25MG
     Route: 048

REACTIONS (4)
  - LACTIC ACIDOSIS [None]
  - MYOCARDIAL INFARCTION [None]
  - HYPOVOLAEMIC SHOCK [None]
  - RENAL FAILURE [None]
